FAERS Safety Report 7220977-9 (Version None)
Quarter: 2011Q1

REPORT INFORMATION
  Report Type: 
  Country: None (occurrence: None)
  Receive Date: 20110112
  Receipt Date: 20110104
  Transmission Date: 20110831
  Serious: Yes (Hospitalization)
  Sender: FDA-Public Use
  Company Number: PHHO2010CN19145

PATIENT
  Sex: Male
  Weight: 86 kg

DRUGS (1)
  1. LDT600 [Suspect]
     Indication: HEPATITIS B
     Dosage: 600 MG
     Route: 048
     Dates: start: 20091217, end: 20101217

REACTIONS (5)
  - BLOOD CREATINE PHOSPHOKINASE MB INCREASED [None]
  - BLOOD CREATINE PHOSPHOKINASE INCREASED [None]
  - TROPONIN INCREASED [None]
  - ASPARTATE AMINOTRANSFERASE INCREASED [None]
  - MYOGLOBIN BLOOD INCREASED [None]
